FAERS Safety Report 8320533-5 (Version None)
Quarter: 2012Q2

REPORT INFORMATION
  Report Type: 
  Country: None (occurrence: None)
  Receive Date: 20120430
  Receipt Date: 20120424
  Transmission Date: 20120825
  Serious: Yes (Hospitalization, Other)
  Sender: FDA-Public Use
  Company Number: FR-PFIZER INC-2012100726

PATIENT
  Age: 51 Year
  Sex: Female

DRUGS (4)
  1. LEXOMIL [Suspect]
     Dosage: UNK
     Route: 048
     Dates: start: 20101001
  2. ACETAMINOPHEN [Suspect]
     Dosage: TWO DOSAGES FORMS PER DAY
     Route: 048
     Dates: start: 20110401
  3. LYRICA [Suspect]
     Dosage: UNK
     Route: 048
     Dates: start: 20081201
  4. ESCITALOPRAM [Suspect]
     Dosage: UNK
     Route: 048
     Dates: start: 20110818, end: 20120322

REACTIONS (3)
  - ARTHRALGIA [None]
  - RAYNAUD'S PHENOMENON [None]
  - INTERSTITIAL LUNG DISEASE [None]
